FAERS Safety Report 7303715-0 (Version None)
Quarter: 2011Q1

REPORT INFORMATION
  Report Type: 
  Country: None (occurrence: None)
  Receive Date: 20110221
  Receipt Date: 20110210
  Transmission Date: 20110831
  Serious: Yes (Other)
  Sender: FDA-Public Use
  Company Number: US-ROCHE-735444

PATIENT
  Sex: Male
  Weight: 68 kg

DRUGS (1)
  1. ACCUTANE [Suspect]
     Indication: ACNE
     Dosage: OTHER INDICATION: RAZOR BUMPS
     Route: 065
     Dates: start: 19880101, end: 19900601

REACTIONS (9)
  - GASTROINTESTINAL INJURY [None]
  - GASTROINTESTINAL HAEMORRHAGE [None]
  - PYLOROSPASM [None]
  - GASTRITIS [None]
  - INTESTINAL HAEMORRHAGE [None]
  - COLONIC POLYP [None]
  - COLITIS ULCERATIVE [None]
  - DUODENITIS [None]
  - HERNIA [None]
